FAERS Safety Report 8087893-4 (Version None)
Quarter: 2012Q1

REPORT INFORMATION
  Report Type: 
  Country: None (occurrence: None)
  Receive Date: 20120128
  Receipt Date: 20110408
  Transmission Date: 20120608
  Serious: No
  Sender: FDA-Public Use
  Company Number: US-ABBOTT-11P-163-0718168-00

PATIENT
  Sex: Female
  Weight: 73.548 kg

DRUGS (4)
  1. ZYRTEC [Concomitant]
     Indication: HYPERSENSITIVITY
  2. MULTI-VITAMIN [Concomitant]
     Indication: VITAMIN SUPPLEMENTATION
  3. HUMIRA [Suspect]
     Indication: RHEUMATOID ARTHRITIS
     Dates: start: 20090101
  4. CALCIUM [Concomitant]
     Indication: MINERAL SUPPLEMENTATION

REACTIONS (3)
  - ARTHRITIS [None]
  - RASH [None]
  - IMPAIRED HEALING [None]
